FAERS Safety Report 10516786 (Version 1)
Quarter: 2014Q4

REPORT INFORMATION
  Report Type: Spontaneous
  Country: GB (occurrence: GB)
  Receive Date: 20141014
  Receipt Date: 20141014
  Transmission Date: 20150528
  Serious: Yes (Life-Threatening, Other)
  Sender: FDA-Public Use
  Company Number: GB-BRISTOL-MYERS SQUIBB COMPANY-21465646

PATIENT
  Sex: Male

DRUGS (6)
  1. HYDROXYCARBAMIDE [Suspect]
     Active Substance: HYDROXYUREA
  2. TAZOCIN [Suspect]
     Active Substance: PIPERACILLIN SODIUM\TAZOBACTAM SODIUM
  3. NILOTINIB [Suspect]
     Active Substance: NILOTINIB
  4. MEROPENEM. [Suspect]
     Active Substance: MEROPENEM
  5. ENOXAPARIN [Suspect]
     Active Substance: ENOXAPARIN
  6. RASBURICASE [Suspect]
     Active Substance: RASBURICASE

REACTIONS (2)
  - Toxic epidermal necrolysis [Unknown]
  - Tumour lysis syndrome [Unknown]

NARRATIVE: CASE EVENT DATE: 20140819
